FAERS Safety Report 20948961 (Version 3)
Quarter: 2022Q3

REPORT INFORMATION
  Report Type: Spontaneous
  Country: ES (occurrence: ES)
  Receive Date: 20220613
  Receipt Date: 20220712
  Transmission Date: 20221026
  Serious: Yes (Hospitalization)
  Sender: FDA-Public Use
  Company Number: ES-JNJFOC-20220556761

PATIENT
  Sex: Female

DRUGS (3)
  1. FENTANYL [Suspect]
     Active Substance: FENTANYL
     Indication: Product used for unknown indication
     Route: 062
  2. FENTANYL [Suspect]
     Active Substance: FENTANYL
     Dosage: STRENGTH 12.00 MCG/HR
     Route: 062
  3. FENTANYL [Suspect]
     Active Substance: FENTANYL

REACTIONS (3)
  - Hospitalisation [Recovered/Resolved]
  - Product packaging quantity issue [Unknown]
  - Product dose omission issue [Unknown]
